FAERS Safety Report 4332734-1 (Version None)
Quarter: 2004Q1

REPORT INFORMATION
  Report Type: 
  Country: None (occurrence: None)
  Receive Date: 20040330
  Receipt Date: 20040326
  Transmission Date: 20041129
  Serious: Yes (Hospitalization, Other)
  Sender: FDA-Public Use
  Company Number: HQWYE554704MAR04

PATIENT
  Age: 54 Year
  Sex: Female

DRUGS (12)
  1. ETANERCEPT (ETANERCEPT, INJECTION) [Suspect]
     Indication: RHEUMATOID ARTHRITIS
     Dosage: 25 MG 2X PER 1 WK SC
     Route: 058
     Dates: start: 20030212, end: 20040301
  2. ETANERCEPT (ETANERCEPT, INJECTION) [Suspect]
     Indication: RHEUMATOID ARTHRITIS
     Dosage: 25 MG 2X PER 1 WK SC
     Route: 058
     Dates: start: 20040308
  3. LOXONIN (LOXOPROFEN SODIUM,) [Suspect]
     Indication: RHEUMATOID ARTHRITIS
     Dosage: 180 MG TOTAL DAILY DOSE ORAL
     Route: 048
     Dates: start: 19890421
  4. PREMARIN [Suspect]
     Indication: MENOPAUSE
     Dosage: 0.625 MG 1X PER 1 DAY ORAL
     Route: 048
     Dates: start: 19990101
  5. PROVERA [Suspect]
     Dosage: 2.5 MG 1X PER 1 DAY ORAL
     Route: 048
     Dates: start: 19990101
  6. SELBEX (TEPRENONE) [Concomitant]
  7. MOHRUS (KETOPROFEN) [Concomitant]
  8. ADOFEED (FLURBIPROFEN) [Concomitant]
  9. ALESION (EPINASTINE HYDROCHLORIDE) [Concomitant]
  10. ZANTAC [Concomitant]
  11. VERAPAMIL HYDROCHLORIDE [Concomitant]
  12. VERAPAMIL HYDROCHLORIDE [Concomitant]

REACTIONS (2)
  - CONDITION AGGRAVATED [None]
  - SUPRAVENTRICULAR TACHYCARDIA [None]
